FAERS Safety Report 18324386 (Version 4)
Quarter: 2021Q3

REPORT INFORMATION
  Report Type: Report from Study
  Country: US (occurrence: US)
  Receive Date: 20200929
  Receipt Date: 20210908
  Transmission Date: 20211014
  Serious: Yes (Other)
  Sender: FDA-Public Use
  Company Number: NVSC2020US259231

PATIENT
  Sex: Female

DRUGS (4)
  1. MAYZENT [Suspect]
     Active Substance: SIPONIMOD
     Dosage: UNK, QOD
     Route: 048
  2. MAYZENT [Suspect]
     Active Substance: SIPONIMOD
     Indication: PRODUCT USED FOR UNKNOWN INDICATION
     Dosage: 2 MG, QD
     Route: 048
  3. BACLOFEN. [Concomitant]
     Active Substance: BACLOFEN
     Indication: PRODUCT USED FOR UNKNOWN INDICATION
     Dosage: UNK
     Route: 065
  4. MAYZENT [Suspect]
     Active Substance: SIPONIMOD
     Dosage: 2 MG, QD
     Route: 048

REACTIONS (10)
  - Pain [Unknown]
  - Chest pain [Unknown]
  - Lymphocyte count decreased [Unknown]
  - Lung disorder [Unknown]
  - Oxygen saturation decreased [Unknown]
  - Fall [Unknown]
  - Muscle spasms [Unknown]
  - Limb discomfort [Unknown]
  - Pneumonia [Unknown]
  - Feeling abnormal [Unknown]
